FAERS Safety Report 8713438 (Version 2)
Quarter: 2013Q1

REPORT INFORMATION
  Report Type: Spontaneous
  Country: RU (occurrence: RU)
  Receive Date: 20120808
  Receipt Date: 20130207
  Transmission Date: 20140127
  Serious: Yes (Other)
  Sender: FDA-Public Use
  Company Number: RU-JNJFOC-20120801717

PATIENT
  Age: 20 Year
  Sex: Male
  Weight: 40 kg

DRUGS (3)
  1. REMICADE [Suspect]
     Indication: ANKYLOSING SPONDYLITIS
     Route: 042
     Dates: start: 20120625
  2. REMICADE [Suspect]
     Indication: ANKYLOSING SPONDYLITIS
     Route: 042
     Dates: start: 20120611
  3. REMICADE [Suspect]
     Indication: ANKYLOSING SPONDYLITIS
     Route: 042
     Dates: start: 20120723

REACTIONS (6)
  - Dyspnoea [Unknown]
  - Choking sensation [Unknown]
  - Cyanosis [Unknown]
  - Laryngospasm [Unknown]
  - Bronchospasm [Unknown]
  - Infusion related reaction [Unknown]
